FAERS Safety Report 5598805-7 (Version None)
Quarter: 2007Q4

REPORT INFORMATION
  Report Type: 
  Country: None (occurrence: None)
  Receive Date: 20071226
  Receipt Date: 20071111
  Transmission Date: 20080405
  Serious: No
  Sender: FDA-Public Use
  Company Number: 2007PV033710

PATIENT
  Age: 37 Year
  Sex: Female

DRUGS (4)
  1. SYMLIN [Suspect]
     Indication: TYPE 2 DIABETES MELLITUS
     Dosage: 10 MCG;BID;SC;5 MCG;BID;SC
     Route: 058
     Dates: start: 20070601, end: 20070601
  2. SYMLIN [Suspect]
     Indication: TYPE 2 DIABETES MELLITUS
     Dosage: 10 MCG;BID;SC;5 MCG;BID;SC
     Route: 058
     Dates: start: 20070601
  3. LANTUS [Concomitant]
  4. NOVOLOG [Concomitant]

REACTIONS (3)
  - DYSGEUSIA [None]
  - NAUSEA [None]
  - WRONG DRUG ADMINISTERED [None]
